FAERS Safety Report 5929592-8 (Version None)
Quarter: 2008Q3

REPORT INFORMATION
  Report Type: 
  Country: None (occurrence: None)
  Receive Date: 20080922
  Receipt Date: 20071025
  Transmission Date: 20090109
  Serious: No
  Sender: FDA-Public Use
  Company Number: T200701310

PATIENT
  Age: 48 Year
  Sex: Female
  Weight: 61.2 kg

DRUGS (4)
  1. HYDROCODONE BITARTRATE + ACETAMINOPHEN [Suspect]
     Indication: PAIN
     Dosage: 1 TABLET Q4-64 PRN, ORAL
     Route: 048
  2. MULTIVITAMIN /00831701/ (VITAMINS NOS) [Concomitant]
  3. VALIUM /00017001/ (DIAZEPAM) [Concomitant]
  4. TRAZODONE HCL [Concomitant]

REACTIONS (2)
  - DRUG INEFFECTIVE [None]
  - INTENTIONAL DRUG MISUSE [None]
